FAERS Safety Report 14587581 (Version 1)
Quarter: 2018Q1

REPORT INFORMATION
  Report Type: Other
  Country: FR (occurrence: FR)
  Receive Date: 20180301
  Receipt Date: 20180301
  Transmission Date: 20180509
  Serious: Yes (Life-Threatening)
  Sender: FDA-Public Use
  Company Number: FR-CELLTRION INC.-2018FR018269

PATIENT

DRUGS (2)
  1. INFLECTRA [Suspect]
     Active Substance: INFLIXIMAB-DYYB
     Indication: ANKYLOSING SPONDYLITIS
     Dosage: 5 MG/KG, CYCLIC (EVERY 6 WEEKS)
     Route: 041
     Dates: start: 20170124, end: 20170309
  2. SYNTOCINON [Concomitant]
     Active Substance: OXYTOCIN

REACTIONS (1)
  - Third stage postpartum haemorrhage [Recovered/Resolved]
